FAERS Safety Report 19441069 (Version 1)
Quarter: 2021Q2

REPORT INFORMATION
  Report Type: Other
  Country: US (occurrence: US)
  Receive Date: 20210621
  Receipt Date: 20210621
  Transmission Date: 20210717
  Serious: Yes (Hospitalization, Other)
  Sender: FDA-Public Use
  Company Number: US-HEALTHCARE PHARMACEUTICALS LTD.-2112901

PATIENT
  Age: 65 Year
  Sex: Female

DRUGS (3)
  1. ATENOLOL TABLETS USP [Suspect]
     Active Substance: ATENOLOL
     Indication: PRODUCT USED FOR UNKNOWN INDICATION
     Route: 048
  2. OLMESARTAN [Suspect]
     Active Substance: OLMESARTAN
     Route: 048
  3. VERAPAMIL [Suspect]
     Active Substance: VERAPAMIL HYDROCHLORIDE
     Route: 048

REACTIONS (3)
  - Bradycardia [Recovered/Resolved]
  - Shock [Recovered/Resolved]
  - Toxicity to various agents [Unknown]
